FAERS Safety Report 4581518-8 (Version None)
Quarter: 2005Q1

REPORT INFORMATION
  Report Type: 
  Country: None (occurrence: None)
  Receive Date: 20050214
  Receipt Date: 20041108
  Transmission Date: 20050727
  Serious: No
  Sender: FDA-Public Use
  Company Number: US-GLAXOSMITHKLINE-A0533115A

PATIENT
  Age: 78 Year
  Sex: Female

DRUGS (1)
  1. LAMICTAL [Suspect]
     Indication: NERVE COMPRESSION
     Dosage: 25MG PER DAY
     Route: 048
     Dates: start: 20041026, end: 20041028

REACTIONS (2)
  - PRURITUS [None]
  - RASH [None]
